FAERS Safety Report 10250746 (Version 1)
Quarter: 2014Q2

REPORT INFORMATION
  Report Type: Other
  Country: US (occurrence: US)
  Receive Date: 20140620
  Receipt Date: 20140620
  Transmission Date: 20141212
  Serious: Yes (Other)
  Sender: FDA-Public Use
  Company Number: US-BRISTOL-MYERS SQUIBB COMPANY-21028105

PATIENT
  Sex: 0

DRUGS (1)
  1. AZTREONAM [Suspect]

REACTIONS (1)
  - Superinfection [Unknown]
